FAERS Safety Report 5328372-4 (Version None)
Quarter: 2007Q2

REPORT INFORMATION
  Report Type: 
  Country: None (occurrence: None)
  Receive Date: 20070515
  Receipt Date: 20070515
  Transmission Date: 20071010
  Serious: Yes (Hospitalization)
  Sender: FDA-Public Use
  Company Number: None

PATIENT
  Age: 68 Year
  Sex: Male
  Weight: 82.1011 kg

DRUGS (6)
  1. GEMZAR [Suspect]
     Indication: PANCREATIC CARCINOMA
     Dosage: 1.9 GRAMS QWK X 3 WKS IV DRIP
     Route: 041
     Dates: start: 20070424, end: 20070508
  2. LAPATINIB [Suspect]
     Indication: PANCREATIC CARCINOMA
     Dosage: 1500MG DAILY PO
     Route: 048
     Dates: start: 20070424, end: 20070510
  3. ACTOS [Concomitant]
  4. METFORMIN HCL [Concomitant]
  5. MIRTAZAPINE [Concomitant]
  6. PRECOSE [Concomitant]

REACTIONS (8)
  - BLOOD GLUCOSE INCREASED [None]
  - CHOLANGITIS [None]
  - DIZZINESS [None]
  - GAIT DISTURBANCE [None]
  - POST PROCEDURAL COMPLICATION [None]
  - STENT OCCLUSION [None]
  - STENT RELATED INFECTION [None]
  - TREMOR [None]
